FAERS Safety Report 8534669-7 (Version None)
Quarter: 2012Q3

REPORT INFORMATION
  Report Type: 
  Country: None (occurrence: None)
  Receive Date: 20120724
  Receipt Date: 20101022
  Transmission Date: 20120928
  Serious: Yes (Hospitalization)
  Sender: FDA-Public Use
  Company Number: US-GLAXOSMITHKLINE-A0889220A

PATIENT
  Age: 60 Year
  Sex: Female
  Weight: 101.8 kg

DRUGS (8)
  1. AVANDIA [Suspect]
     Indication: TYPE 2 DIABETES MELLITUS
     Dosage: 8MG PER DAY
     Route: 048
     Dates: end: 20080101
  2. LIPITOR [Concomitant]
  3. GLUCOPHAGE [Concomitant]
  4. LOPRESSOR [Concomitant]
  5. GLIPIZIDE [Concomitant]
  6. HYDROCHLOROTHIAZIDE [Concomitant]
  7. LEVOXYL [Concomitant]
  8. ADVAIR DISKUS 100/50 [Concomitant]

REACTIONS (21)
  - CHEST PAIN [None]
  - DYSPNOEA [None]
  - SINUS BRADYCARDIA [None]
  - ATRIOVENTRICULAR BLOCK FIRST DEGREE [None]
  - PAIN [None]
  - INTERVERTEBRAL DISC DISPLACEMENT [None]
  - CONDUCTION DISORDER [None]
  - GASTROOESOPHAGEAL REFLUX DISEASE [None]
  - BUNDLE BRANCH BLOCK LEFT [None]
  - ANHEDONIA [None]
  - IMPAIRED WORK ABILITY [None]
  - INTERVERTEBRAL DISC DEGENERATION [None]
  - FEAR [None]
  - EMOTIONAL DISTRESS [None]
  - PRODUCTIVE COUGH [None]
  - SINUS HEADACHE [None]
  - INJURY [None]
  - MYOCARDIAL INFARCTION [None]
  - ANXIETY [None]
  - ELECTROCARDIOGRAM T WAVE ABNORMAL [None]
  - BRONCHITIS [None]
